FAERS Safety Report 11596377 (Version 1)
Quarter: 2015Q4

REPORT INFORMATION
  Report Type: Spontaneous
  Country: US (occurrence: None)
  Receive Date: 20151005
  Receipt Date: 20151005
  Transmission Date: 20160304
  Serious: Yes (Disabling)
  Sender: FDA-Public Use
  Company Number: None

PATIENT
  Age: 32 Year
  Sex: Female
  Weight: 47.63 kg

DRUGS (2)
  1. MULTIHANCE [Suspect]
     Active Substance: GADOBENATE DIMEGLUMINE
     Indication: NUCLEAR MAGNETIC RESONANCE IMAGING
     Dosage: INTO A VEIN
     Route: 042
     Dates: start: 20150929, end: 20150929
  2. FISH OIL [Concomitant]
     Active Substance: FISH OIL

REACTIONS (13)
  - Activities of daily living impaired [None]
  - Paraesthesia [None]
  - Musculoskeletal pain [None]
  - Mental impairment [None]
  - Back pain [None]
  - Vision blurred [None]
  - Feeling abnormal [None]
  - Contrast media reaction [None]
  - Burning sensation [None]
  - Vomiting [None]
  - Arthralgia [None]
  - Pain in extremity [None]
  - Nausea [None]

NARRATIVE: CASE EVENT DATE: 20150929
